FAERS Safety Report 5975763-4 (Version None)
Quarter: 2008Q4

REPORT INFORMATION
  Report Type: 
  Country: None (occurrence: None)
  Receive Date: 20081202
  Receipt Date: 20081125
  Transmission Date: 20090506
  Serious: Yes (Other)
  Sender: FDA-Public Use
  Company Number: FR-MERCK-0811FRA00064

PATIENT
  Age: 62 Year
  Sex: Male

DRUGS (1)
  1. ZOCOR [Suspect]
     Indication: DYSLIPIDAEMIA
     Route: 048
     Dates: start: 20060101, end: 20080501

REACTIONS (2)
  - TENDON RUPTURE [None]
  - TENDONITIS [None]
